FAERS Safety Report 7362307-8 (Version None)
Quarter: 2011Q1

REPORT INFORMATION
  Report Type: 
  Country: None (occurrence: None)
  Receive Date: 20110309
  Receipt Date: 20110218
  Transmission Date: 20110831
  Serious: Yes (Hospitalization, Other)
  Sender: FDA-Public Use
  Company Number: JPI-P-013975

PATIENT
  Age: 28 Year
  Sex: Female
  Weight: 56.246 kg

DRUGS (3)
  1. TOPIRAMATE [Concomitant]
  2. XYREM [Suspect]
     Indication: CATAPLEXY
     Dosage: ORAL; 4.5 GM (2.25 GM, 2 IN 1 D), ORAL
     Route: 048
     Dates: start: 20070701
  3. LEVETIRACETAM [Concomitant]

REACTIONS (7)
  - FATIGUE [None]
  - BILE DUCT OBSTRUCTION [None]
  - SCAR [None]
  - POST PROCEDURAL CONSTIPATION [None]
  - HEADACHE [None]
  - GRAND MAL CONVULSION [None]
  - POST PROCEDURAL COMPLICATION [None]
